FAERS Safety Report 9631037 (Version 1)
Quarter: 2013Q4

REPORT INFORMATION
  Report Type: Spontaneous
  Country: US (occurrence: US)
  Receive Date: 20131018
  Receipt Date: 20131018
  Transmission Date: 20140711
  Serious: No
  Sender: FDA-Public Use
  Company Number: US-BAYER-2013-126182

PATIENT
  Age: 79 Year
  Sex: Male
  Weight: 90.7 kg

DRUGS (3)
  1. ALEVE CAPLET [Suspect]
     Indication: BACK PAIN
     Dosage: 2 DF, QD
     Route: 048
     Dates: start: 20131015
  2. BAYER ASPIRIN REGIMEN ADULT LOW STRENGTH [Concomitant]
     Indication: ISCHAEMIC HEART DISEASE PROPHYLAXIS
  3. NORCO [Concomitant]
     Indication: BACK PAIN
     Dosage: UNK
     Dates: start: 20130718, end: 20131015

REACTIONS (1)
  - Abdominal pain upper [Not Recovered/Not Resolved]
